FAERS Safety Report 7708682-3 (Version None)
Quarter: 2011Q3

REPORT INFORMATION
  Report Type: 
  Country: None (occurrence: None)
  Receive Date: 20110825
  Receipt Date: 20110811
  Transmission Date: 20111222
  Serious: Yes (Other)
  Sender: FDA-Public Use
  Company Number: US-UCBSA-039088

PATIENT
  Sex: Female
  Weight: 72.57 kg

DRUGS (1)
  1. CIMZIA [Suspect]
     Indication: RHEUMATOID ARTHRITIS
     Dosage: INDUCTION DOSING
     Route: 058
     Dates: start: 20110725, end: 20110811

REACTIONS (3)
  - LIP SWELLING [None]
  - URTICARIA [None]
  - SWELLING FACE [None]
